FAERS Safety Report 24319883 (Version 1)
Quarter: 2024Q3

REPORT INFORMATION
  Report Type: Spontaneous
  Country: JP (occurrence: JP)
  Receive Date: 20240914
  Receipt Date: 20240914
  Transmission Date: 20241017
  Serious: Yes (Hospitalization)
  Sender: ROCHE
  Company Number: JP-CHUGAI-2024014817

PATIENT
  Age: 80 Year
  Sex: Female

DRUGS (2)
  1. AVASTIN [Suspect]
     Active Substance: BEVACIZUMAB
     Indication: Fallopian tube cancer
     Dosage: UNK
     Route: 065
  2. GEMCITABINE HYDROCHLORIDE [Suspect]
     Active Substance: GEMCITABINE HYDROCHLORIDE
     Indication: Fallopian tube cancer
     Dosage: UNK
     Route: 042

REACTIONS (1)
  - Seizure [Not Recovered/Not Resolved]
